FAERS Safety Report 5350517-0 (Version None)
Quarter: 2007Q2

REPORT INFORMATION
  Report Type: 
  Country: None (occurrence: None)
  Receive Date: 20070606
  Receipt Date: 20070606
  Transmission Date: 20071010
  Serious: Yes (Hospitalization)
  Sender: FDA-Public Use
  Company Number: None

PATIENT
  Sex: Male
  Weight: 109.1 kg

DRUGS (15)
  1. CYCLOPHOSPHAMIDE [Suspect]
     Dosage: 1392 MG
  2. DOXIL [Suspect]
     Dosage: 81 MG
  3. NEULASTA [Suspect]
     Dosage: 6 MG
  4. PREDNISONE TAB [Suspect]
     Dosage: 500 MG
  5. RITUXIMAB (MOAB C2B8 ANTI CD20, CHIMERIC) [Suspect]
     Dosage: 870 MG
  6. VINCRISTINE SULFATE [Suspect]
     Dosage: 2 MG
  7. ATIVAN [Concomitant]
  8. DEPAKOTE [Concomitant]
  9. LORTAB [Concomitant]
  10. LOVENOX [Concomitant]
  11. MORPHINE [Concomitant]
  12. NEXIUM [Concomitant]
  13. PROZAC [Concomitant]
  14. SYNTHROID [Concomitant]
  15. XANAX [Concomitant]

REACTIONS (3)
  - DYSPHAGIA [None]
  - FEBRILE NEUTROPENIA [None]
  - WHITE BLOOD CELL COUNT DECREASED [None]
